FAERS Safety Report 5720539-6 (Version None)
Quarter: 2008Q2

REPORT INFORMATION
  Report Type: 
  Country: None (occurrence: None)
  Receive Date: 20080428
  Receipt Date: 20080423
  Transmission Date: 20081010
  Serious: Yes (Death, Hospitalization, Other)
  Sender: FDA-Public Use
  Company Number: 10227981

PATIENT
  Age: 71 Year
  Sex: Male
  Weight: 59 kg

DRUGS (6)
  1. MAXIPIME [Suspect]
     Indication: INFECTION
     Route: 042
     Dates: start: 19991016, end: 19991021
  2. MAXIPIME [Suspect]
     Indication: CHRONIC OBSTRUCTIVE PULMONARY DISEASE
     Route: 042
     Dates: start: 19991016, end: 19991021
  3. MERONEM [Concomitant]
     Route: 042
     Dates: start: 19991016
  4. EUPHYLLINE [Concomitant]
     Dosage: 2 AMPOULLES IV/24 HOURS
     Dates: start: 19991020
  5. SOLU-MEDROL [Concomitant]
  6. LYSOMUCIL [Concomitant]
     Dosage: 3 AMP

REACTIONS (4)
  - CHOREA [None]
  - COMA [None]
  - DEATH [None]
  - MYOCLONUS [None]
